FAERS Safety Report 23811654 (Version 1)
Quarter: 2024Q2

REPORT INFORMATION
  Report Type: Spontaneous
  Country: US (occurrence: US)
  Receive Date: 20240503
  Receipt Date: 20240503
  Transmission Date: 20240715
  Serious: No
  Sender: FDA-Public Use
  Company Number: US-HALEON-2171155

PATIENT
  Sex: Female

DRUGS (2)
  1. ALLI [Suspect]
     Active Substance: ORLISTAT
     Indication: Weight decreased
  2. ALLI [Suspect]
     Active Substance: ORLISTAT
     Dates: start: 20240408, end: 20240422

REACTIONS (1)
  - Drug ineffective [Unknown]
